FAERS Safety Report 16599302 (Version 1)
Quarter: 2019Q3

REPORT INFORMATION
  Report Type: Spontaneous
  Country: PH (occurrence: PH)
  Receive Date: 20190719
  Receipt Date: 20190719
  Transmission Date: 20191004
  Serious: Yes (Other)
  Sender: FDA-Public Use
  Company Number: PHHY2019PH165330

PATIENT
  Age: 50 Year
  Sex: Female

DRUGS (1)
  1. SCAPHO [Suspect]
     Active Substance: SECUKINUMAB
     Indication: PSORIATIC ARTHROPATHY
     Dosage: 1 DF, ONCE/SINGLE
     Route: 058
     Dates: start: 20190524

REACTIONS (2)
  - Pruritus [Recovered/Resolved]
  - Choking [Unknown]
